FAERS Safety Report 17870787 (Version 1)
Quarter: 2020Q2

REPORT INFORMATION
  Report Type: Spontaneous
  Country: US (occurrence: US)
  Receive Date: 20200608
  Receipt Date: 20200608
  Transmission Date: 20200714
  Serious: Yes (Hospitalization)
  Sender: FDA-Public Use
  Company Number: US-GILEAD-2020-0470339

PATIENT
  Sex: Male

DRUGS (10)
  1. HUMALOG [Concomitant]
     Active Substance: INSULIN LISPRO
  2. LISINOPRIL. [Concomitant]
     Active Substance: LISINOPRIL
  3. HYDROCORTISONE. [Concomitant]
     Active Substance: HYDROCORTISONE
  4. FLUDROCORTISONE ACETATE. [Concomitant]
     Active Substance: FLUDROCORTISONE ACETATE
  5. ALBUTEROL [SALBUTAMOL] [Concomitant]
     Active Substance: ALBUTEROL
  6. POTASSIUM [Concomitant]
     Active Substance: POTASSIUM
  7. CARVIDOL [Concomitant]
  8. ASPIRIN [ACETYLSALICYLIC ACID] [Concomitant]
     Active Substance: ASPIRIN
  9. GABAPENTIN. [Concomitant]
     Active Substance: GABAPENTIN
  10. SOFOSBUVIR;VELPATASVIR [Suspect]
     Active Substance: SOFOSBUVIR\VELPATASVIR
     Indication: CHRONIC HEPATITIS C
     Dosage: 1 DOSAGE FORM, QD
     Route: 048

REACTIONS (2)
  - Respiratory disorder [Unknown]
  - Osteoarthritis [Unknown]
